FAERS Safety Report 8414943-5 (Version None)
Quarter: 2012Q2

REPORT INFORMATION
  Report Type: 
  Country: None (occurrence: None)
  Receive Date: 20120601
  Receipt Date: 20120601
  Transmission Date: 20120825
  Serious: Yes (Disabling, Other)
  Sender: FDA-Public Use
  Company Number: None

PATIENT
  Age: 37 Year
  Sex: Female
  Weight: 108.8633 kg

DRUGS (1)
  1. LARIAM [Suspect]
     Indication: MALARIA PROPHYLAXIS
     Dosage: 1 PILL WEEKLY PO
     Route: 048
     Dates: start: 20041101, end: 20050131

REACTIONS (18)
  - BALANCE DISORDER [None]
  - MEAN PLATELET VOLUME DECREASED [None]
  - PLATELET COUNT INCREASED [None]
  - SLEEP DISORDER [None]
  - MYOCLONUS [None]
  - DEAFNESS [None]
  - FATIGUE [None]
  - URTICARIA CHRONIC [None]
  - NEUTROPHIL COUNT INCREASED [None]
  - LIVER INJURY [None]
  - TINNITUS [None]
  - APLASTIC ANAEMIA [None]
  - GINGIVAL BLEEDING [None]
  - EOSINOPHIL COUNT INCREASED [None]
  - HEART RATE INCREASED [None]
  - VERTIGO [None]
  - CONTUSION [None]
  - RESTLESS LEGS SYNDROME [None]
